FAERS Safety Report 11060780 (Version 1)
Quarter: 2015Q2

REPORT INFORMATION
  Report Type: Report from Study
  Country: US (occurrence: US)
  Receive Date: 20150423
  Receipt Date: 20150423
  Transmission Date: 20150821
  Serious: Yes (Death, Life-Threatening, Hospitalization)
  Sender: FDA-Public Use
  Company Number: US-BRISTOL-MYERS SQUIBB COMPANY-BMS-2015-023757

PATIENT
  Age: 70 Year
  Sex: Male

DRUGS (2)
  1. XGEVA [Concomitant]
     Active Substance: DENOSUMAB
     Indication: BONE CANCER
     Route: 065
  2. IPILIMUMAB [Suspect]
     Active Substance: IPILIMUMAB
     Indication: BONE CANCER
     Dosage: UNK
     Route: 042
     Dates: start: 20150203

REACTIONS (2)
  - Death [Fatal]
  - Respiratory tract inflammation [Unknown]

NARRATIVE: CASE EVENT DATE: 201502
